FAERS Safety Report 11336513 (Version 2)
Quarter: 2016Q2

REPORT INFORMATION
  Report Type: Spontaneous
  Country: JP (occurrence: JP)
  Receive Date: 20150804
  Receipt Date: 20160404
  Transmission Date: 20160815
  Serious: Yes (Death, Life-Threatening, Other)
  Sender: FDA-Public Use
  Company Number: JP-HOSPIRA-2955816

PATIENT
  Age: 43 Year
  Sex: Male

DRUGS (28)
  1. TEICOPLANIN [Concomitant]
     Active Substance: TEICOPLANIN
     Indication: PYREXIA
     Route: 041
     Dates: start: 20150704, end: 20150704
  2. ELEMENMIC [Concomitant]
     Active Substance: CUPRIC SULFATE\FERRIC CHLORIDE\MANGANESE CHLORIDE\POTASSIUM IODIDE\ZINC SULFATE
     Indication: FLUID REPLACEMENT
     Route: 041
     Dates: start: 20150703, end: 20150704
  3. PRECEDEX [Suspect]
     Active Substance: DEXMEDETOMIDINE HYDROCHLORIDE
     Indication: SEDATIVE THERAPY
     Route: 041
     Dates: start: 20150627, end: 20150705
  4. ISOTONIC SODIUM CHLORIDE SOLUTION [Concomitant]
     Active Substance: SODIUM CHLORIDE
     Indication: FLUID REPLACEMENT
     Route: 041
     Dates: start: 20150626, end: 20150705
  5. FINIBAX [Concomitant]
     Active Substance: DORIPENEM MONOHYDRATE
     Indication: PYREXIA
     Route: 041
     Dates: start: 20150628, end: 20150702
  6. DORMICUM                           /00036201/ [Concomitant]
     Active Substance: NITRAZEPAM
     Indication: SEDATIVE THERAPY
     Route: 042
     Dates: start: 20150626, end: 20150630
  7. NESP [Concomitant]
     Active Substance: DARBEPOETIN ALFA
     Indication: NEPHROGENIC ANAEMIA
     Route: 058
     Dates: start: 20150630, end: 20150630
  8. HUMAN SERUM ALBUMIN [Concomitant]
     Active Substance: ALBUMIN HUMAN
     Indication: DIURETIC THERAPY
     Route: 041
     Dates: start: 20150627, end: 20150629
  9. DAIMEDIN MULTI [Concomitant]
     Indication: FLUID REPLACEMENT
     Route: 041
     Dates: start: 20150703, end: 20150704
  10. SOLDEM [Concomitant]
     Active Substance: DEXTROSE\POTASSIUM CHLORIDE\SODIUM CHLORIDE\SODIUM LACTATE
     Indication: FLUID REPLACEMENT
     Route: 041
     Dates: start: 20150629, end: 20150629
  11. NOVOLIN R [Concomitant]
     Active Substance: INSULIN HUMAN
     Indication: DIABETES MELLITUS
     Route: 041
     Dates: start: 20150626, end: 20150701
  12. OMEPRAL                            /00661201/ [Concomitant]
     Active Substance: OMEPRAZOLE
     Indication: PRODUCT USED FOR UNKNOWN INDICATION
     Route: 042
     Dates: start: 20150627, end: 20150705
  13. FENTANYL CITRATE. [Concomitant]
     Active Substance: FENTANYL CITRATE
     Indication: SEDATIVE THERAPY
     Route: 041
     Dates: start: 20150626, end: 20150705
  14. STRONGER NEO MINOPHAGEN C [Concomitant]
     Indication: HEPATIC FUNCTION ABNORMAL
     Route: 042
     Dates: start: 20150702, end: 20150704
  15. NEOAMIYU [Concomitant]
     Active Substance: AMINO ACIDS
     Indication: FLUID REPLACEMENT
     Route: 041
     Dates: start: 20150703, end: 20150704
  16. ACELIO [Concomitant]
     Active Substance: ACETAMINOPHEN
     Indication: PYREXIA
     Dosage: 1000-4000 MG (1-4 IN 1 DAY)
     Route: 041
     Dates: start: 20150626, end: 20150704
  17. SOLDEM [Concomitant]
     Active Substance: DEXTROSE\POTASSIUM CHLORIDE\SODIUM CHLORIDE\SODIUM LACTATE
     Indication: FLUID REPLACEMENT
     Route: 041
     Dates: start: 20150626, end: 20150701
  18. LASIX [Concomitant]
     Active Substance: FUROSEMIDE
     Indication: DIURETIC THERAPY
     Dosage: 20 OR 40 MG, 1 OR 2 IN 1 DAY
     Route: 042
     Dates: start: 20150627, end: 20150703
  19. TRESIBA [Concomitant]
     Active Substance: INSULIN DEGLUDEC
     Indication: DIABETES MELLITUS
     Dosage: 6-13 UNITS
     Route: 058
     Dates: start: 20150624, end: 20150629
  20. MINOCYCLINE HYDROCHLORIDE. [Concomitant]
     Active Substance: MINOCYCLINE HYDROCHLORIDE
     Indication: PYREXIA
     Route: 041
     Dates: start: 20150702, end: 20150704
  21. SERENACE [Concomitant]
     Active Substance: HALOPERIDOL
     Indication: SEDATIVE THERAPY
     Dosage: 10 OR 15 MG (2 OR 3 IN 1 DAY)
     Route: 030
     Dates: start: 20150701, end: 20150702
  22. NEOAMIYU [Concomitant]
     Active Substance: AMINO ACIDS
     Indication: RENAL FAILURE
     Route: 041
     Dates: start: 20150703, end: 20150704
  23. HERBESSER [Concomitant]
     Active Substance: DILTIAZEM HYDROCHLORIDE
     Indication: BLOOD PRESSURE MANAGEMENT
     Route: 041
     Dates: start: 20150630, end: 20150630
  24. HICALIQ [Concomitant]
     Active Substance: CALCIUM GLUCONATE\DEXTROSE\MAGNESIUM SULFATE\POTASSIUM ACETATE\POTASSIUM PHOSPHATE, DIBASIC\ZINC SULFATE
     Indication: FLUID REPLACEMENT
     Route: 041
     Dates: start: 20150703, end: 20150704
  25. CERCINE [Concomitant]
     Active Substance: DIAZEPAM
     Indication: SEDATIVE THERAPY
     Route: 042
     Dates: start: 20150701, end: 20150701
  26. CEFAZOLIN SODIUM. [Concomitant]
     Active Substance: CEFAZOLIN SODIUM
     Indication: INFECTION PROPHYLAXIS
     Route: 041
     Dates: start: 20150626, end: 20150628
  27. BISOLVON [Concomitant]
     Active Substance: BROMHEXINE HYDROCHLORIDE
     Indication: PRODUCTIVE COUGH
     Route: 042
     Dates: start: 20150628, end: 20150704
  28. HERBESSER [Concomitant]
     Active Substance: DILTIAZEM HYDROCHLORIDE
     Indication: BLOOD PRESSURE MANAGEMENT
     Route: 041
     Dates: start: 20150629, end: 20150629

REACTIONS (7)
  - Pyrexia [Not Recovered/Not Resolved]
  - Cardiac arrest [Fatal]
  - Heart rate decreased [Fatal]
  - Blood pressure decreased [Fatal]
  - Sputum increased [Unknown]
  - Respiratory depression [Fatal]
  - Hypertension [Unknown]

NARRATIVE: CASE EVENT DATE: 20150629
